FAERS Safety Report 22525580 (Version 1)
Quarter: 2023Q2

REPORT INFORMATION
  Report Type: Spontaneous
  Country: US (occurrence: US)
  Receive Date: 20230606
  Receipt Date: 20230606
  Transmission Date: 20230722
  Serious: Yes (Other)
  Sender: FDA-Public Use
  Company Number: US-OTSUKA-2023_014405

PATIENT
  Sex: Female
  Weight: 77.11 kg

DRUGS (4)
  1. SAMSCA [Suspect]
     Active Substance: TOLVAPTAN
     Indication: Blood sodium decreased
     Dosage: UNK
     Route: 065
     Dates: start: 2018, end: 2021
  2. XANAX [Suspect]
     Active Substance: ALPRAZOLAM
     Indication: Adrenal insufficiency
     Dosage: 0.25 MG
     Route: 065
  3. XANAX [Suspect]
     Active Substance: ALPRAZOLAM
     Dosage: 0.5 MG (INCREASED)
     Route: 065
  4. XANAX [Suspect]
     Active Substance: ALPRAZOLAM
     Dosage: 1 MG (INCREASED)
     Route: 065

REACTIONS (4)
  - Seizure [Unknown]
  - Blood sodium decreased [Unknown]
  - Incorrect product administration duration [Unknown]
  - Inappropriate schedule of product administration [Unknown]

NARRATIVE: CASE EVENT DATE: 20180101
